FAERS Safety Report 4596524-7 (Version None)
Quarter: 2005Q1

REPORT INFORMATION
  Report Type: 
  Country: None (occurrence: None)
  Receive Date: 20050228
  Receipt Date: 20031028
  Transmission Date: 20050727
  Serious: Yes (Death)
  Sender: FDA-Public Use
  Company Number: 6474

PATIENT
  Age: 67 Year
  Sex: Male

DRUGS (3)
  1. LOMUSTINE [Suspect]
     Indication: SMALL CELL LUNG CANCER STAGE UNSPECIFIED
  2. METHOTREXATE [Suspect]
     Indication: SMALL CELL LUNG CANCER STAGE UNSPECIFIED
  3. CYCLOPHOSPHAMIDE [Suspect]
     Indication: SMALL CELL LUNG CANCER STAGE UNSPECIFIED

REACTIONS (3)
  - BLOOD CREATININE INCREASED [None]
  - BLOOD LACTATE DEHYDROGENASE INCREASED [None]
  - TUMOUR LYSIS SYNDROME [None]
